FAERS Safety Report 12889147 (Version 1)
Quarter: 2016Q4

REPORT INFORMATION
  Report Type: Spontaneous
  Country: DK (occurrence: DE)
  Receive Date: 20161027
  Receipt Date: 20161027
  Transmission Date: 20170207
  Serious: Yes (Other)
  Sender: FDA-Public Use
  Company Number: PHHY2016DE147150

PATIENT
  Age: 13 Year
  Sex: Male

DRUGS (8)
  1. RITUXIMAB [Suspect]
     Active Substance: RITUXIMAB
     Indication: NON-HODGKIN^S LYMPHOMA
  2. CYCLOPHOSPHAMIDE. [Suspect]
     Active Substance: CYCLOPHOSPHAMIDE
     Indication: NON-HODGKIN^S LYMPHOMA
  3. CYCLOPHOSPHAMIDE. [Suspect]
     Active Substance: CYCLOPHOSPHAMIDE
     Indication: EPSTEIN-BARR VIRUS INFECTION
     Dosage: 40 MG/KG, UNK
     Route: 065
  4. FLUDARABINE [Suspect]
     Active Substance: FLUDARABINE PHOSPHATE
     Indication: EPSTEIN-BARR VIRUS INFECTION
  5. BUSILVEX [Suspect]
     Active Substance: BUSULFAN
     Indication: EPSTEIN-BARR VIRUS INFECTION
     Dosage: 1.6 MG/KG, UNK
     Route: 042
  6. FLUDARABINE [Suspect]
     Active Substance: FLUDARABINE PHOSPHATE
     Indication: NON-HODGKIN^S LYMPHOMA
     Dosage: 180 MG/M2, UNK
     Route: 065
  7. RITUXIMAB [Suspect]
     Active Substance: RITUXIMAB
     Indication: EPSTEIN-BARR VIRUS INFECTION
     Dosage: 2? 375 MG/M2
     Route: 065
  8. BUSILVEX [Suspect]
     Active Substance: BUSULFAN
     Indication: NON-HODGKIN^S LYMPHOMA

REACTIONS (11)
  - BK virus infection [Unknown]
  - Pleural effusion [Unknown]
  - Hepatomegaly [Unknown]
  - Cystitis haemorrhagic [Unknown]
  - Gastrointestinal haemorrhage [Unknown]
  - Retrograde portal vein flow [Unknown]
  - Acute respiratory distress syndrome [Unknown]
  - Venoocclusive disease [Unknown]
  - Ascites [Unknown]
  - Mucosal toxicity [Unknown]
  - Sepsis [Unknown]
